FAERS Safety Report 4331026-4 (Version None)
Quarter: 2004Q1

REPORT INFORMATION
  Report Type: 
  Country: None (occurrence: None)
  Receive Date: 20040329
  Receipt Date: 20040316
  Transmission Date: 20041129
  Serious: Yes (Death)
  Sender: FDA-Public Use
  Company Number: B0327285A

PATIENT
  Age: 43 Year
  Sex: Female

DRUGS (4)
  1. IMITREX [Suspect]
  2. ACETAMINOPHEN [Concomitant]
  3. ACYCLOVIR [Concomitant]
  4. CYCLOPHOSPHAMIDE [Concomitant]

REACTIONS (6)
  - BLINDNESS TRANSIENT [None]
  - BRAIN STEM HAEMORRHAGE [None]
  - CEREBRAL INFARCTION [None]
  - CEREBROVASCULAR SPASM [None]
  - INTRACRANIAL PRESSURE INCREASED [None]
  - VASOSPASM [None]
